FAERS Safety Report 7238397-X (Version None)
Quarter: 2011Q1

REPORT INFORMATION
  Report Type: 
  Country: None (occurrence: None)
  Receive Date: 20110121
  Receipt Date: 20110121
  Transmission Date: 20110831
  Serious: Yes (Hospitalization)
  Sender: FDA-Public Use
  Company Number: DE-SANOFI-AVENTIS-2011SA001668

PATIENT
  Age: 56 Year
  Sex: Female
  Weight: 58 kg

DRUGS (3)
  1. DOCETAXEL [Suspect]
     Indication: BREAST CANCER
     Route: 041
     Dates: start: 20110105, end: 20110105
  2. DEXAMETHASONE [Suspect]
     Route: 041
     Dates: start: 20110105, end: 20110105
  3. DOCETAXEL [Suspect]
     Route: 041

REACTIONS (2)
  - PANCREATITIS ACUTE [None]
  - VOMITING [None]
